FAERS Safety Report 5203703-4 (Version None)
Quarter: 2007Q1

REPORT INFORMATION
  Report Type: 
  Country: None (occurrence: None)
  Receive Date: 20070105
  Receipt Date: 20070105
  Transmission Date: 20070707
  Serious: Yes (Hospitalization)
  Sender: FDA-Public Use
  Company Number: None

PATIENT
  Sex: Male
  Weight: 74.3899 kg

DRUGS (10)
  1. BEVACIZUMAB [Suspect]
     Indication: NON-SMALL CELL LUNG CANCER STAGE IV
     Dosage: 15 MG/KG EVERY 3 WEEKS IV
     Route: 042
     Dates: start: 20061107
  2. BEVACIZUMAB [Suspect]
     Indication: NON-SMALL CELL LUNG CANCER STAGE IV
     Dosage: 15 MG/KG EVERY 3 WEEKS IV
     Route: 042
     Dates: start: 20061219
  3. BEVACIZUMAB [Suspect]
  4. OXYCODONE HCL [Concomitant]
  5. M.V.I. [Concomitant]
  6. COMBIVENT [Concomitant]
  7. DEXMETHASONE [Concomitant]
  8. PACLITAXEL [Concomitant]
  9. CARBOPLATIN [Concomitant]
  10. ZOMETA [Concomitant]

REACTIONS (1)
  - PULMONARY EMBOLISM [None]
